FAERS Safety Report 8784429 (Version 1)
Quarter: 2012Q4

REPORT INFORMATION
  Report Type: Spontaneous
  Country: IT (occurrence: None)
  Receive Date: 20120830
  Receipt Date: 20120830
  Transmission Date: 20130627
  Serious: Yes (Hospitalization, Other)
  Sender: FDA-Public Use
  Company Number: IMP_05967_2012

PATIENT
  Age: 75 Year
  Sex: Male

DRUGS (3)
  1. CLONIDINE HYDROCHLORIDE [Suspect]
  2. FENOBARBITAL [Suspect]
  3. FLUIDS (UNKNOWN) [Concomitant]

REACTIONS (3)
  - Drug reaction with eosinophilia and systemic symptoms [None]
  - Blood creatine phosphokinase increased [None]
  - Human herpesvirus 6 infection [None]
